FAERS Safety Report 25331584 (Version 2)
Quarter: 2025Q2

REPORT INFORMATION
  Report Type: Spontaneous
  Country: US (occurrence: US)
  Receive Date: 20250519
  Receipt Date: 20250523
  Transmission Date: 20250717
  Serious: Yes (Life-Threatening, Hospitalization)
  Sender: TEVA
  Company Number: US-TEVA-VS-3331379

PATIENT
  Age: 67 Year
  Sex: Male

DRUGS (20)
  1. DEXAMETHASONE [Suspect]
     Active Substance: DEXAMETHASONE
     Indication: Cytokine release syndrome
     Route: 065
  2. DEXAMETHASONE [Suspect]
     Active Substance: DEXAMETHASONE
     Indication: Cytokine release syndrome
     Route: 065
  3. OLAPARIB [Concomitant]
     Active Substance: OLAPARIB
     Indication: Hormone-refractory prostate cancer
  4. DOCETAXEL [Concomitant]
     Active Substance: DOCETAXEL
     Indication: Hormone-refractory prostate cancer
  5. RUXOLITINIB [Suspect]
     Active Substance: RUXOLITINIB
     Indication: Cytokine release syndrome
     Route: 065
  6. LEUPROLIDE ACETATE [Concomitant]
     Active Substance: LEUPROLIDE ACETATE
     Indication: Hormone-refractory prostate cancer
  7. ANAKINRA [Suspect]
     Active Substance: ANAKINRA
     Indication: Cytokine release syndrome
     Route: 065
  8. TOCILIZUMAB [Suspect]
     Active Substance: TOCILIZUMAB
     Indication: Cytokine release syndrome
     Route: 065
  9. METHYLPREDNISOLONE [Suspect]
     Active Substance: METHYLPREDNISOLONE
     Indication: Cytokine release syndrome
     Route: 065
  10. LEVETIRACETAM [Suspect]
     Active Substance: LEVETIRACETAM
     Indication: Encephalopathy
     Route: 065
  11. RIMIDUCID [Suspect]
     Active Substance: RIMIDUCID
     Indication: Hormone-refractory prostate cancer
     Route: 065
  12. DEGARELIX [Concomitant]
     Active Substance: DEGARELIX
     Indication: Hormone-refractory prostate cancer
  13. PHENYLEPHRINE [Suspect]
     Active Substance: PHENYLEPHRINE
     Indication: Cytokine release syndrome
     Route: 065
  14. ANGIOTENSIN II [Suspect]
     Active Substance: ANGIOTENSIN II
     Indication: Cytokine release syndrome
     Route: 065
  15. CYCLOPHOSPHAMIDE [Concomitant]
     Active Substance: CYCLOPHOSPHAMIDE
     Indication: Hormone-refractory prostate cancer
     Route: 065
  16. FLUDARABINE [Concomitant]
     Active Substance: FLUDARABINE PHOSPHATE
     Indication: Hormone-refractory prostate cancer
     Route: 065
  17. SILTUXIMAB [Suspect]
     Active Substance: SILTUXIMAB
     Indication: Cytokine release syndrome
     Route: 065
  18. VASOPRESSIN [Suspect]
     Active Substance: VASOPRESSIN
     Indication: Cytokine release syndrome
     Route: 065
  19. NOREPINEPHRINE [Suspect]
     Active Substance: NOREPINEPHRINE
     Indication: Cytokine release syndrome
     Route: 065
  20. APALUTAMIDE [Concomitant]
     Active Substance: APALUTAMIDE
     Indication: Hormone-refractory prostate cancer

REACTIONS (19)
  - Hypersensitivity [Recovering/Resolving]
  - Multi-organ disorder [Unknown]
  - Embolic stroke [Unknown]
  - Respiratory failure [Recovering/Resolving]
  - Shock [Unknown]
  - Ischaemia [Unknown]
  - Enterococcal infection [Unknown]
  - Enterococcal bacteraemia [Unknown]
  - Brain injury [Unknown]
  - Haemodynamic instability [Recovering/Resolving]
  - Cytokine release syndrome [Recovered/Resolved]
  - Drug ineffective [Unknown]
  - Multiple organ dysfunction syndrome [Unknown]
  - Renal failure [Unknown]
  - Disseminated intravascular coagulation [Unknown]
  - Lactic acidosis [Unknown]
  - Haematuria [Recovering/Resolving]
  - Dry eye [Recovering/Resolving]
  - Rash macular [Recovering/Resolving]
